FAERS Safety Report 4320598-1 (Version None)
Quarter: 2004Q1

REPORT INFORMATION
  Report Type: 
  Country: None (occurrence: None)
  Receive Date: 20040318
  Receipt Date: 20040302
  Transmission Date: 20041129
  Serious: Yes (Other)
  Sender: FDA-Public Use
  Company Number: PHBS2004AT03261

PATIENT
  Age: 80 Year
  Sex: Male

DRUGS (1)
  1. VISUDYNE [Suspect]
     Indication: CHOROIDAL NEOVASCULARISATION

REACTIONS (5)
  - CONDITION AGGRAVATED [None]
  - DISEASE PROGRESSION [None]
  - RETINAL HAEMORRHAGE [None]
  - RETINAL TEAR [None]
  - VISUAL ACUITY REDUCED [None]
